FAERS Safety Report 9706452 (Version 1)
Quarter: 2013Q4

REPORT INFORMATION
  Report Type: Spontaneous
  Country: US (occurrence: US)
  Receive Date: 20131125
  Receipt Date: 20131125
  Transmission Date: 20140711
  Serious: Yes (Hospitalization)
  Sender: FDA-Public Use
  Company Number: 2012SP001107

PATIENT
  Age: 90 Year
  Sex: Female

DRUGS (3)
  1. GEMCITABINE [Suspect]
     Indication: ADENOCARCINOMA PANCREAS
  2. AMIODARONE [Suspect]
     Indication: PRODUCT USED FOR UNKNOWN INDICATION
  3. ERLOTINIB [Suspect]
     Indication: ADENOCARCINOMA PANCREAS

REACTIONS (4)
  - Pulmonary toxicity [Recovering/Resolving]
  - Interstitial lung disease [Recovering/Resolving]
  - Respiratory distress [Recovering/Resolving]
  - Respiratory failure [Recovering/Resolving]
